FAERS Safety Report 15339081 (Version 3)
Quarter: 2018Q4

REPORT INFORMATION
  Report Type: Spontaneous
  Country: JP (occurrence: JP)
  Receive Date: 20180831
  Receipt Date: 20181017
  Transmission Date: 20190204
  Serious: Yes (Other)
  Sender: FDA-Public Use
  Company Number: JP-PFIZER INC-2018348399

PATIENT
  Age: 62 Year
  Sex: Male
  Weight: 68.4 kg

DRUGS (1)
  1. DEXMEDETOMIDINE HYDROCHLORIDE. [Suspect]
     Active Substance: DEXMEDETOMIDINE HYDROCHLORIDE
     Dosage: 6 UG/KG, UNK (6 ?G/KG/HOUR FOR 10 MINUTES)
     Route: 042

REACTIONS (1)
  - Arteriospasm coronary [Unknown]
